FAERS Safety Report 22144555 (Version 6)
Quarter: 2023Q2

REPORT INFORMATION
  Report Type: Spontaneous
  Country: PT (occurrence: PT)
  Receive Date: 20230328
  Receipt Date: 20230602
  Transmission Date: 20230722
  Serious: Yes (Life-Threatening, Hospitalization, Other)
  Sender: FDA-Public Use
  Company Number: PT-IPCA LABORATORIES LIMITED-IPC-2023-PT-000515

PATIENT

DRUGS (11)
  1. AMLODIPINE [Suspect]
     Active Substance: AMLODIPINE BESYLATE
     Indication: Product used for unknown indication
     Dosage: 140 MILLIGRAM, 1 TOTAL
     Route: 048
  2. LOSARTAN [Suspect]
     Active Substance: LOSARTAN
     Indication: Product used for unknown indication
     Dosage: 1.4 GRAM, 1 TOTAL
     Route: 048
  3. LOSARTAN [Suspect]
     Active Substance: LOSARTAN
     Indication: Overdose
  4. CARVEDILOL [Suspect]
     Active Substance: CARVEDILOL
     Indication: Product used for unknown indication
     Dosage: 250 MILLIGRAM, 1 TOTAL
     Route: 065
  5. CARVEDILOL [Suspect]
     Active Substance: CARVEDILOL
     Indication: Overdose
  6. ETODOLAC [Suspect]
     Active Substance: ETODOLAC
     Indication: Product used for unknown indication
     Dosage: 3 GRAM,1 TOTAL
     Route: 065
  7. AMOXICILLIN\CLAVULANIC ACID [Suspect]
     Active Substance: AMOXICILLIN\CLAVULANIC ACID
     Indication: Product used for unknown indication
     Dosage: 8 GRAM
     Route: 048
  8. AMOXICILLIN\CLAVULANIC ACID [Suspect]
     Active Substance: AMOXICILLIN\CLAVULANIC ACID
     Dosage: 9.6 GRAM
     Route: 048
  9. AMOXICILLIN\CLAVULANIC ACID [Suspect]
     Active Substance: AMOXICILLIN\CLAVULANIC ACID
     Dosage: 2 GRAM
     Route: 048
  10. ACEMETACIN [Suspect]
     Active Substance: ACEMETACIN
     Indication: Product used for unknown indication
     Dosage: 900 MILLIGRAM, 1 TOTAL
     Route: 065
  11. ACEMETACIN [Suspect]
     Active Substance: ACEMETACIN
     Indication: Overdose

REACTIONS (7)
  - Hypokalaemia [Recovered/Resolved]
  - Hypoglycaemia [Recovered/Resolved]
  - Toxicity to various agents [Recovered/Resolved]
  - Hypotension [Recovered/Resolved]
  - Cardiogenic shock [Recovered/Resolved]
  - Intentional overdose [Recovered/Resolved]
  - Toxicity to various agents [Recovered/Resolved]
